FAERS Safety Report 8087475-4 (Version None)
Quarter: 2012Q1

REPORT INFORMATION
  Report Type: 
  Country: None (occurrence: None)
  Receive Date: 20120128
  Receipt Date: 20110502
  Transmission Date: 20120608
  Serious: No
  Sender: FDA-Public Use
  Company Number: US-ABBOTT-11P-163-0722975-00

PATIENT
  Age: 60 Year
  Sex: Female

DRUGS (11)
  1. NOW BRAND BONE STRENTH WITH VIT D [Concomitant]
     Indication: PRODUCT USED FOR UNKNOWN INDICATION
     Dosage: DAILY
  2. CELEXA [Concomitant]
     Indication: ARTHRALGIA
     Dosage: 20MG DAILY
  3. HUMIRA [Suspect]
     Indication: PSORIASIS
     Dosage: INTERRUPTED
     Dates: start: 20110301, end: 20110419
  4. AZATHIOPRINE [Concomitant]
     Indication: PRODUCT USED FOR UNKNOWN INDICATION
  5. PHENTERMINE [Concomitant]
     Indication: DRUG THERAPY
     Dosage: OTC
  6. ASACOL [Concomitant]
     Indication: PRODUCT USED FOR UNKNOWN INDICATION
  7. MAXZIDE [Concomitant]
     Indication: POLYURIA
     Dosage: 40MG DAILY
  8. IBUPROFEN [Concomitant]
     Indication: PAIN
  9. POTASSIUM WITH DIURETIC [Concomitant]
     Indication: PRODUCT USED FOR UNKNOWN INDICATION
     Dosage: 10 MG WITH DIURETIC
  10. GLUCOSAMINE [Concomitant]
     Indication: PRODUCT USED FOR UNKNOWN INDICATION
     Dosage: DAILY
  11. OSTEO BI-FLEX [Concomitant]
     Indication: PRODUCT USED FOR UNKNOWN INDICATION
     Dosage: 2 TABS DAILY

REACTIONS (8)
  - DIZZINESS [None]
  - BRONCHITIS [None]
  - HYPOKINESIA [None]
  - GAIT DISTURBANCE [None]
  - ARTHRALGIA [None]
  - NAUSEA [None]
  - SYNCOPE [None]
  - RASH MACULO-PAPULAR [None]
